FAERS Safety Report 25758986 (Version 2)
Quarter: 2025Q4

REPORT INFORMATION
  Report Type: Spontaneous
  Country: US (occurrence: US)
  Receive Date: 20250904
  Receipt Date: 20251010
  Transmission Date: 20260118
  Serious: Yes (Hospitalization)
  Sender: SANOFI AVENTIS
  Company Number: US-SA-2025SA262055

PATIENT
  Age: 63 Year
  Sex: Female
  Weight: 34.921 kg

DRUGS (1)
  1. DUPIXENT [Suspect]
     Active Substance: DUPILUMAB
     Indication: Chronic obstructive pulmonary disease
     Dosage: 300 MG, QOW
     Route: 058

REACTIONS (11)
  - Hospitalisation [Unknown]
  - Immune system disorder [Unknown]
  - White blood cell count increased [Unknown]
  - Weight decreased [Unknown]
  - Rhinorrhoea [Unknown]
  - Throat irritation [Unknown]
  - Diarrhoea [Unknown]
  - Nasopharyngitis [Unknown]
  - Oropharyngeal pain [Unknown]
  - Eye pruritus [Unknown]
  - Lacrimation increased [Unknown]
